FAERS Safety Report 6614458-0 (Version None)
Quarter: 2010Q1

REPORT INFORMATION
  Report Type: 
  Country: None (occurrence: None)
  Receive Date: 20100304
  Receipt Date: 20100304
  Transmission Date: 20100710
  Serious: No
  Sender: FDA-Public Use
  Company Number: None

PATIENT
  Age: 71 Year
  Sex: Male
  Weight: 89.5 kg

DRUGS (1)
  1. FOSINOPRIL SODIUM [Suspect]
     Dosage: 40 MG BID PO
     Route: 048
     Dates: start: 20010324, end: 20100210

REACTIONS (1)
  - ANGIOEDEMA [None]
